FAERS Safety Report 7043478-X (Version None)
Quarter: 2010Q4

REPORT INFORMATION
  Report Type: 
  Country: None (occurrence: None)
  Receive Date: 20101013
  Receipt Date: 20100728
  Transmission Date: 20110411
  Serious: No
  Sender: FDA-Public Use
  Company Number: US-ASTRAZENECA-2010SE22587

PATIENT
  Age: 66 Year
  Sex: Male
  Weight: 113.4 kg

DRUGS (6)
  1. SYMBICORT [Suspect]
     Indication: ASTHMA
     Dosage: TOTAL DAILY DOSE 320 MCG TWO TIMES DAY
     Route: 055
     Dates: start: 20100201
  2. SYMBICORT [Suspect]
     Dosage: TOTAL DAILY DOSE 320 MCG TWO TIMES DAY
     Route: 055
     Dates: start: 20100517
  3. SYMBICORT [Suspect]
     Dosage: TWO PUFFS
     Route: 055
     Dates: start: 20100706
  4. RHINOCORT [Concomitant]
     Indication: MULTIPLE ALLERGIES
     Route: 045
     Dates: start: 20070109
  5. CLARITIN [Concomitant]
     Indication: MULTIPLE ALLERGIES
     Route: 048
  6. PROVENTIL [Concomitant]
     Indication: ASTHMA
     Route: 065
     Dates: start: 20070925

REACTIONS (8)
  - ASTHMA [None]
  - CHEST DISCOMFORT [None]
  - COUGH [None]
  - DRUG DOSE OMISSION [None]
  - DYSPNOEA [None]
  - INCORRECT DOSE ADMINISTERED [None]
  - MUSCLE SPASMS [None]
  - WHEEZING [None]
